FAERS Safety Report 17629441 (Version 1)
Quarter: 2020Q2

REPORT INFORMATION
  Report Type: Spontaneous
  Country: US (occurrence: US)
  Receive Date: 20200406
  Receipt Date: 20200406
  Transmission Date: 20200713
  Serious: No
  Sender: FDA-Public Use
  Company Number: US-MYLANLABS-2020M1031324

PATIENT
  Sex: Female

DRUGS (13)
  1. LEVOTHYROXINE. [Concomitant]
     Active Substance: LEVOTHYROXINE
     Dosage: UNK, QD
  2. ELIQUIS [Concomitant]
     Active Substance: APIXABAN
     Dosage: UNK, BID
  3. FENTANYL TRANSDERMAL SYSTEM [Suspect]
     Active Substance: FENTANYL
     Indication: PAIN
     Dosage: 12 MICROGRAM
     Route: 062
  4. PRILOSEC [Concomitant]
     Active Substance: OMEPRAZOLE MAGNESIUM
     Dosage: UNK, BID
  5. METFORMIN [Concomitant]
     Active Substance: METFORMIN HYDROCHLORIDE
     Dosage: UNK, BID
  6. PREDNISONE. [Concomitant]
     Active Substance: PREDNISONE
     Dosage: 10MG THEN 5MG
  7. ATORVASTATIN [Concomitant]
     Active Substance: ATORVASTATIN
     Dosage: UNK, QD
  8. METOPROLOL. [Concomitant]
     Active Substance: METOPROLOL
     Dosage: HALF TABLET
  9. SPIRONOLACTONE. [Concomitant]
     Active Substance: SPIRONOLACTONE
     Dosage: UNK, QD
  10. ROPINIROLE. [Concomitant]
     Active Substance: ROPINIROLE
     Dosage: UNK, PM (AT BEDTIME)
  11. CLONAZEPAM. [Concomitant]
     Active Substance: CLONAZEPAM
     Dosage: UNK
  12. TIZANIDINE. [Concomitant]
     Active Substance: TIZANIDINE
     Dosage: UNK, PM (AT BEDTIME)
  13. TRAZODONE [Concomitant]
     Active Substance: TRAZODONE HYDROCHLORIDE
     Dosage: UNK

REACTIONS (2)
  - Wrong technique in product usage process [Unknown]
  - Withdrawal syndrome [Not Recovered/Not Resolved]
